FAERS Safety Report 7613955 (Version 3)
Quarter: 2013Q1

REPORT INFORMATION
  Report Type: Spontaneous
  Country: CA (occurrence: CA)
  Receive Date: 20101001
  Receipt Date: 20130226
  Transmission Date: 20140127
  Serious: Yes (Death, Hospitalization, Other)
  Sender: FDA-Public Use
  Company Number: CA-JNJFOC-20100907145

PATIENT
  Sex: Male
  Weight: 68.6 kg

DRUGS (5)
  1. REMICADE [Suspect]
     Indication: CROHN^S DISEASE
     Dosage: 5MG/KG. TOTAL 13 INFUSIONS
     Route: 042
     Dates: start: 20090422, end: 201107
  2. REMICADE [Suspect]
     Indication: CROHN^S DISEASE
     Route: 042
     Dates: start: 20090409, end: 20110404
  3. HUMIRA [Suspect]
     Indication: IMMUNOSUPPRESSANT DRUG THERAPY
     Dosage: (160-80-40)
     Route: 065
     Dates: start: 20080421, end: 20090406
  4. PURINETHOL [Concomitant]
     Indication: CROHN^S DISEASE
     Dosage: AM
     Route: 048
     Dates: start: 199611
  5. PANTOLOC [Concomitant]
     Indication: GASTROOESOPHAGEAL REFLUX DISEASE
     Route: 048

REACTIONS (2)
  - Rectal cancer [Fatal]
  - Hepatic cirrhosis [Not Recovered/Not Resolved]
